FAERS Safety Report 24271945 (Version 3)
Quarter: 2024Q4

REPORT INFORMATION
  Report Type: Report from Study
  Country: US (occurrence: US)
  Receive Date: 20240902
  Receipt Date: 20241015
  Transmission Date: 20250115
  Serious: No
  Sender: ACADIA PHARMACEUTICALS
  Company Number: US-ACADIA PHARMACEUTICALS INC.-ACA-2024-PIM-004600

PATIENT
  Sex: Male

DRUGS (11)
  1. NUPLAZID [Suspect]
     Active Substance: PIMAVANSERIN TARTRATE
     Indication: Parkinson^s disease
     Dosage: 34 MILLIGRAM, QD
     Route: 048
     Dates: start: 202407
  2. NUPLAZID [Suspect]
     Active Substance: PIMAVANSERIN TARTRATE
     Indication: Parkinson^s disease psychosis
  3. CYMBALTA [Concomitant]
     Active Substance: DULOXETINE HYDROCHLORIDE
  4. ASPIRIN [Concomitant]
     Active Substance: ASPIRIN
  5. MIDODRINE [Concomitant]
     Active Substance: MIDODRINE
  6. NEXIUM [Concomitant]
     Active Substance: ESOMEPRAZOLE MAGNESIUM
  7. CRESTOR [Concomitant]
     Active Substance: ROSUVASTATIN CALCIUM
  8. TYLENOL [Concomitant]
     Active Substance: ACETAMINOPHEN
  9. VITAMIN D3 [Concomitant]
     Active Substance: CHOLECALCIFEROL
  10. RYTARY [Concomitant]
     Active Substance: CARBIDOPA\LEVODOPA
  11. MELOXICAM [Concomitant]
     Active Substance: MELOXICAM

REACTIONS (8)
  - Physiotherapy [Not Recovered/Not Resolved]
  - Delirium [Recovering/Resolving]
  - Hypertension [Unknown]
  - Weight increased [Unknown]
  - Abdominal distension [Unknown]
  - Peripheral swelling [Not Recovered/Not Resolved]
  - Constipation [Unknown]
  - Peripheral swelling [Unknown]
